FAERS Safety Report 6078566-8 (Version None)
Quarter: 2009Q1

REPORT INFORMATION
  Report Type: 
  Country: None (occurrence: None)
  Receive Date: 20090212
  Receipt Date: 20090206
  Transmission Date: 20090719
  Serious: No
  Sender: FDA-Public Use
  Company Number: TPG2009A00138

PATIENT
  Age: 57 Year
  Sex: Male

DRUGS (2)
  1. COMPETACT (PIOGLITAZONE HYDROCHLORIDE,METFORMIN HYDROCHLORIDE) [Suspect]
     Indication: TYPE 2 DIABETES MELLITUS
     Dosage: PIOGLITAZONE 30 MG/METFORMIN 1700 MG PER ORAL
     Route: 048
     Dates: start: 20090102, end: 20090112
  2. LISINOPRIL/HCT (HYDROCHLOROTHIAZIDE, LISINOPRIL) [Concomitant]

REACTIONS (1)
  - URTICARIA [None]
